FAERS Safety Report 8070866-5 (Version None)
Quarter: 2012Q1

REPORT INFORMATION
  Report Type: 
  Country: None (occurrence: None)
  Receive Date: 20120125
  Receipt Date: 20120123
  Transmission Date: 20120608
  Serious: Yes (Other)
  Sender: FDA-Public Use
  Company Number: US-AMGEN-USASP2011001063

PATIENT
  Sex: Male
  Weight: 121.9 kg

DRUGS (7)
  1. TRICOR [Concomitant]
  2. RITUXAN [Concomitant]
     Indication: IDIOPATHIC THROMBOCYTOPENIC PURPURA
     Dosage: 900 MG, QWK
     Route: 042
     Dates: start: 20110113, end: 20110225
  3. PREDNISONE [Concomitant]
     Indication: IDIOPATHIC THROMBOCYTOPENIC PURPURA
     Dosage: 40 MG, UNK
     Dates: start: 19981221
  4. DANAZOL [Concomitant]
     Indication: IDIOPATHIC THROMBOCYTOPENIC PURPURA
     Dosage: UNK
     Dates: start: 19981221
  5. NPLATE [Suspect]
     Indication: IDIOPATHIC THROMBOCYTOPENIC PURPURA
     Dosage: 9 MUG/KG, QWK
     Route: 058
     Dates: start: 20101010, end: 20110124
  6. DEXAMETHASONE [Concomitant]
  7. IMMUNE GLOBULIN NOS [Concomitant]
     Indication: IDIOPATHIC THROMBOCYTOPENIC PURPURA
     Dosage: UNK
     Dates: start: 19981209

REACTIONS (1)
  - THERAPEUTIC RESPONSE DECREASED [None]
